FAERS Safety Report 13110068 (Version 1)
Quarter: 2017Q1

REPORT INFORMATION
  Report Type: Spontaneous
  Country: US (occurrence: US)
  Receive Date: 20170112
  Receipt Date: 20170112
  Transmission Date: 20170428
  Serious: Yes (Hospitalization)
  Sender: FDA-Public Use
  Company Number: US-ROCHE-1101445

PATIENT
  Age: 47 Year
  Sex: Male

DRUGS (6)
  1. VALIUM [Concomitant]
     Active Substance: DIAZEPAM
     Route: 065
  2. ACTIVASE [Suspect]
     Active Substance: ALTEPLASE
     Indication: ACUTE MYOCARDIAL INFARCTION
     Route: 042
  3. RESTORIL [Concomitant]
     Active Substance: TEMAZEPAM
     Route: 065
  4. PROMETHAZINE [Concomitant]
     Active Substance: PROMETHAZINE\PROMETHAZINE HYDROCHLORIDE
     Route: 065
  5. LIDOCAINE. [Concomitant]
     Active Substance: LIDOCAINE
     Route: 065
  6. LOPRESSOR [Concomitant]
     Active Substance: METOPROLOL TARTRATE
     Route: 065

REACTIONS (2)
  - Reperfusion arrhythmia [Unknown]
  - Ventricular tachycardia [Unknown]
